FAERS Safety Report 7987280-0 (Version None)
Quarter: 2011Q4

REPORT INFORMATION
  Report Type: 
  Country: None (occurrence: None)
  Receive Date: 20111216
  Receipt Date: 20110329
  Transmission Date: 20120403
  Serious: No
  Sender: FDA-Public Use
  Company Number: US-BRISTOL-MYERS SQUIBB COMPANY-15643653

PATIENT
  Age: 38 Year
  Sex: Female

DRUGS (5)
  1. LITHIUM CARBONATE [Concomitant]
  2. SYNTHROID [Concomitant]
     Indication: THYROID DISORDER
  3. ABILIFY [Suspect]
     Indication: MAJOR DEPRESSION
     Dosage: INITIALLY THE DOSE GIVEN 10MG,THEN REDUCED TO 5MG.
  4. VYVANSE [Concomitant]
     Indication: ATTENTION DEFICIT/HYPERACTIVITY DISORDER
  5. DEPAKOTE [Concomitant]

REACTIONS (1)
  - AKATHISIA [None]
